FAERS Safety Report 26069660 (Version 1)
Quarter: 2025Q4

REPORT INFORMATION
  Report Type: Spontaneous
  Country: AU (occurrence: AU)
  Receive Date: 20251120
  Receipt Date: 20251120
  Transmission Date: 20260118
  Serious: Yes (Death, Other)
  Sender: TEVA
  Company Number: AU-ADVANZ PHARMA-202511010021

PATIENT
  Age: 50 Year
  Sex: Male

DRUGS (3)
  1. OXYCODONE [Suspect]
     Active Substance: OXYCODONE
     Indication: Product used for unknown indication
     Route: 065
  2. NORTRIPTYLINE [Suspect]
     Active Substance: NORTRIPTYLINE
     Indication: Product used for unknown indication
     Dosage: UNK
     Route: 065
  3. AMITRIPTYLINE [Suspect]
     Active Substance: AMITRIPTYLINE
     Indication: Product used for unknown indication
     Route: 065

REACTIONS (4)
  - Pulmonary embolism [Fatal]
  - Overdose [Fatal]
  - Toxicity to various agents [Fatal]
  - Deep vein thrombosis [Fatal]
